FAERS Safety Report 9170231 (Version 1)
Quarter: 2013Q1

REPORT INFORMATION
  Report Type: Spontaneous
  Country: GB (occurrence: GB)
  Receive Date: 20130319
  Receipt Date: 20130319
  Transmission Date: 20140127
  Serious: Yes (Other)
  Sender: FDA-Public Use
  Company Number: PHFR2013GB001720

PATIENT
  Age: 60 Year
  Sex: Male

DRUGS (2)
  1. TERBINAFINE [Suspect]
     Indication: ONYCHOMYCOSIS
     Dosage: 250 MG, QD
     Route: 048
     Dates: start: 20121220, end: 20130114
  2. CETIRIZINE [Concomitant]

REACTIONS (2)
  - Violence-related symptom [Recovered/Resolved]
  - Anger [Recovered/Resolved]
